FAERS Safety Report 17861561 (Version 3)
Quarter: 2020Q2

REPORT INFORMATION
  Report Type: Report from Study
  Country: IT (occurrence: IT)
  Receive Date: 20200604
  Receipt Date: 20200623
  Transmission Date: 20200714
  Serious: Yes (Other)
  Sender: FDA-Public Use
  Company Number: IT-JNJFOC-20200604936

PATIENT

DRUGS (9)
  1. STELARA [Suspect]
     Active Substance: USTEKINUMAB
     Indication: ARTHRITIS
     Route: 058
  2. LEFLUNOMIDE. [Concomitant]
     Active Substance: LEFLUNOMIDE
     Route: 065
  3. HYDROXYCHLOROQUINE [Concomitant]
     Active Substance: HYDROXYCHLOROQUINE
     Route: 065
  4. STELARA [Suspect]
     Active Substance: USTEKINUMAB
  5. SIMPONI [Suspect]
     Active Substance: GOLIMUMAB
     Indication: ARTHRITIS
     Route: 058
  6. METHOTREXATE. [Concomitant]
     Active Substance: METHOTREXATE
     Route: 065
  7. CICLOSPORIN [Concomitant]
     Active Substance: CYCLOSPORINE
     Route: 065
  8. REMICADE [Suspect]
     Active Substance: INFLIXIMAB
     Indication: ARTHRITIS
     Route: 042
  9. SULFASALAZINE. [Concomitant]
     Active Substance: SULFASALAZINE
     Route: 065

REACTIONS (45)
  - Uveitis [Unknown]
  - Crohn^s disease [Unknown]
  - Asthenia [Unknown]
  - Herpes zoster [Unknown]
  - Hypertransaminasaemia [Unknown]
  - Influenza [Unknown]
  - Urticaria [Unknown]
  - Treatment failure [Unknown]
  - Basal cell carcinoma [Unknown]
  - Psoriatic arthropathy [Unknown]
  - Arthritis [Unknown]
  - Eye infection [Unknown]
  - DNA antibody positive [Unknown]
  - Butterfly rash [Unknown]
  - Dizziness [Unknown]
  - Injection site urticaria [Unknown]
  - Rash [Unknown]
  - Pruritus [Unknown]
  - Malaise [Unknown]
  - Hyperhidrosis [Unknown]
  - Dyspnoea [Unknown]
  - Antinuclear antibody positive [Unknown]
  - Tooth infection [Unknown]
  - Nausea [Unknown]
  - Sacroiliitis [Unknown]
  - Tonsillar hypertrophy [Unknown]
  - Pyrexia [Unknown]
  - Palmar erythema [Unknown]
  - Rash pruritic [Unknown]
  - Hepatic steatosis [Unknown]
  - Enthesopathy [Unknown]
  - Cough [Unknown]
  - Oral infection [Unknown]
  - Localised infection [Unknown]
  - Otitis media [Unknown]
  - Infusion related reaction [Unknown]
  - Neutropenia [Unknown]
  - Nail disorder [Unknown]
  - Dactylitis [Unknown]
  - Bronchitis [Unknown]
  - Headache [Unknown]
  - Injection site hypersensitivity [Unknown]
  - Psoriasis [Unknown]
  - Lymphocytosis [Unknown]
  - Herpes simplex [Unknown]
